FAERS Safety Report 11320603 (Version 1)
Quarter: 2015Q3

REPORT INFORMATION
  Report Type: Spontaneous
  Country: US (occurrence: None)
  Receive Date: 20150728
  Receipt Date: 20150728
  Transmission Date: 20151125
  Serious: No
  Sender: FDA-Public Use
  Company Number: None

PATIENT
  Age: 48 Year
  Sex: Female

DRUGS (5)
  1. MUCINEX [Suspect]
     Active Substance: GUAIFENESIN
     Route: 048
     Dates: start: 20150724, end: 20150724
  2. METFORMIN [Concomitant]
     Active Substance: METFORMIN HYDROCHLORIDE
  3. ASPRIN [Concomitant]
     Active Substance: ASPIRIN
  4. LINISOPRIL [Concomitant]
  5. NOVOLOG PEN [Concomitant]

REACTIONS (5)
  - Urticaria [None]
  - Palpitations [None]
  - Pruritus [None]
  - Vertigo [None]
  - Erythema [None]

NARRATIVE: CASE EVENT DATE: 20150725
